FAERS Safety Report 7378576-4 (Version None)
Quarter: 2011Q1

REPORT INFORMATION
  Report Type: 
  Country: None (occurrence: None)
  Receive Date: 20110328
  Receipt Date: 20110321
  Transmission Date: 20110831
  Serious: Yes (Hospitalization)
  Sender: FDA-Public Use
  Company Number: DE-GILEAD-2011-0036699

PATIENT
  Sex: Male

DRUGS (8)
  1. NAPROXEN [Suspect]
     Indication: ARTHROPATHY
     Dates: end: 20110128
  2. PROVAS COMP [Concomitant]
  3. METOHEXAL [Concomitant]
  4. TEBONIN [Concomitant]
  5. ASPIRIN [Concomitant]
  6. RANEXA [Suspect]
     Dates: start: 20101206, end: 20110106
  7. RANEXA [Suspect]
     Indication: ANGINA PECTORIS
     Route: 048
     Dates: start: 20110107, end: 20110128
  8. SIMVASTATIN [Concomitant]

REACTIONS (1)
  - TUBULOINTERSTITIAL NEPHRITIS [None]
